FAERS Safety Report 21888798 (Version 1)
Quarter: 2023Q1

REPORT INFORMATION
  Report Type: Spontaneous
  Country: US (occurrence: US)
  Receive Date: 20230120
  Receipt Date: 20230120
  Transmission Date: 20230417
  Serious: No
  Sender: FDA-Public Use
  Company Number: US-002147023-NVSC2023US012189

PATIENT
  Age: 45 Year
  Sex: Female

DRUGS (1)
  1. XIIDRA [Suspect]
     Active Substance: LIFITEGRAST
     Indication: Dry eye
     Dosage: UNK UNK, BID, (STRENGTH: 50MG/ML 5 %)
     Route: 047
     Dates: start: 20230118, end: 20230118

REACTIONS (1)
  - Eye discharge [Unknown]

NARRATIVE: CASE EVENT DATE: 20230118
